FAERS Safety Report 6389223-2 (Version None)
Quarter: 2009Q4

REPORT INFORMATION
  Report Type: 
  Country: None (occurrence: None)
  Receive Date: 20091006
  Receipt Date: 20070905
  Transmission Date: 20100525
  Serious: Yes (Hospitalization, Other)
  Sender: FDA-Public Use
  Company Number: US-ASTRAZENECA-2006UW08471

PATIENT
  Age: 545 Month
  Sex: Male
  Weight: 59 kg

DRUGS (9)
  1. SEROQUEL [Suspect]
     Indication: DEPRESSION
     Route: 048
     Dates: start: 19990101
  2. SEROQUEL [Suspect]
     Indication: BIPOLAR DISORDER
     Route: 048
     Dates: start: 19990101
  3. INTERFERON [Concomitant]
     Indication: MULTIPLE SCLEROSIS
     Dosage: 0.3 MG PER KG / 0.1 CC EVERY OTHER DAY
     Dates: start: 20061107
  4. ZETIA [Concomitant]
     Dates: start: 20061107
  5. ASPIRIN [Concomitant]
     Dates: start: 20061107
  6. FLEXERIL [Concomitant]
     Dosage: 10 - 30 MG DAILY
     Dates: start: 20061107
  7. NIASPAN [Concomitant]
     Dates: start: 20061107
  8. LISINOPRIL [Concomitant]
     Dates: start: 20061107
  9. LOVASTATIN [Concomitant]
     Dosage: 40 - 80 MG DAILY
     Dates: start: 20061107

REACTIONS (6)
  - CEREBROVASCULAR ACCIDENT [None]
  - DIABETES MELLITUS [None]
  - DIABETIC NEUROPATHY [None]
  - POLYNEUROPATHY [None]
  - TYPE 1 DIABETES MELLITUS [None]
  - TYPE 2 DIABETES MELLITUS [None]
